FAERS Safety Report 4889244-2 (Version None)
Quarter: 2006Q1

REPORT INFORMATION
  Report Type: 
  Country: None (occurrence: None)
  Receive Date: 20060120
  Receipt Date: 20060120
  Transmission Date: 20060701
  Serious: Yes (Life-Threatening, Other)
  Sender: FDA-Public Use
  Company Number: None

PATIENT
  Age: 4 Year
  Sex: Female
  Weight: 19.5047 kg

DRUGS (1)
  1. ELIDEL [Suspect]
     Indication: ECZEMA
     Dosage: APPLIED TO EFFECTED AREAS  2-3 TIMES PER WEEK  OTHER
     Route: 050
     Dates: start: 20040715, end: 20060110

REACTIONS (1)
  - MELANOCYTIC NAEVUS [None]
